FAERS Safety Report 4381308-5 (Version None)
Quarter: 2004Q2

REPORT INFORMATION
  Report Type: 
  Country: None (occurrence: None)
  Receive Date: 20040621
  Receipt Date: 20040513
  Transmission Date: 20050107
  Serious: Yes (Hospitalization)
  Sender: FDA-Public Use
  Company Number: 200411949FR

PATIENT
  Age: 39 Year
  Sex: Female
  Weight: 65 kg

DRUGS (8)
  1. TAXOTERE [Suspect]
     Indication: BREAST CANCER
     Route: 042
     Dates: start: 20040423, end: 20040423
  2. CARBOPLATINE [Suspect]
     Indication: BREAST CANCER
     Route: 042
     Dates: start: 20040423, end: 20040423
  3. HERCEPTINE [Suspect]
     Indication: BREAST CANCER
     Route: 042
     Dates: start: 20040422, end: 20040430
  4. TRIFLUCAN [Concomitant]
     Route: 048
  5. SPASFON [Concomitant]
     Route: 048
  6. PARIET [Concomitant]
     Route: 048
  7. SEROPRAM [Concomitant]
     Route: 048
  8. XANAX [Concomitant]
     Route: 048

REACTIONS (8)
  - ABDOMINAL PAIN [None]
  - ANXIETY [None]
  - ASTHENIA [None]
  - DYSPEPSIA [None]
  - DYSPNOEA [None]
  - EJECTION FRACTION DECREASED [None]
  - LATENT TETANY [None]
  - TREMOR [None]
